FAERS Safety Report 11911289 (Version 2)
Quarter: 2016Q4

REPORT INFORMATION
  Report Type: Spontaneous
  Country: US (occurrence: US)
  Receive Date: 20160112
  Receipt Date: 20161215
  Transmission Date: 20170206
  Serious: Yes (Other)
  Sender: FDA-Public Use
  Company Number: US-ELI_LILLY_AND_COMPANY-US201601000973

PATIENT
  Age: 42 Year
  Sex: Female
  Weight: 85 kg

DRUGS (2)
  1. CYMBALTA [Suspect]
     Active Substance: DULOXETINE HYDROCHLORIDE
     Indication: PAIN
     Dosage: UNK, UNKNOWN
     Route: 065
     Dates: end: 201201
  2. CYMBALTA [Suspect]
     Active Substance: DULOXETINE HYDROCHLORIDE
     Indication: DEPRESSION

REACTIONS (12)
  - Dysphoria [Unknown]
  - Mood swings [Unknown]
  - Drug withdrawal syndrome [Unknown]
  - Dizziness [Unknown]
  - Diarrhoea [Unknown]
  - Feeling abnormal [Unknown]
  - Crying [Unknown]
  - Vertigo [Unknown]
  - Affect lability [Unknown]
  - Paraesthesia [Unknown]
  - Disturbance in attention [Unknown]
  - Nausea [Unknown]

NARRATIVE: CASE EVENT DATE: 201201
